FAERS Safety Report 6585565-6 (Version None)
Quarter: 2010Q1

REPORT INFORMATION
  Report Type: 
  Country: None (occurrence: None)
  Receive Date: 20100217
  Receipt Date: 20100212
  Transmission Date: 20100710
  Serious: Yes (Death)
  Sender: FDA-Public Use
  Company Number: GB-JNJFOC-20100206623

PATIENT
  Age: 45 Year
  Sex: Female

DRUGS (9)
  1. ACETAMINOPHEN [Suspect]
  2. ACETAMINOPHEN [Suspect]
     Indication: DRUG USE FOR UNKNOWN INDICATION
  3. TRAMADOL [Suspect]
     Indication: DRUG USE FOR UNKNOWN INDICATION
  4. OXYCONTIN [Suspect]
     Indication: DRUG USE FOR UNKNOWN INDICATION
  5. ALCOHOL [Suspect]
     Indication: DRUG USE FOR UNKNOWN INDICATION
  6. OXYNORM [Suspect]
     Indication: DRUG USE FOR UNKNOWN INDICATION
  7. ORAMORPH SR [Suspect]
     Indication: DRUG USE FOR UNKNOWN INDICATION
  8. AMITRIPTYLINE HCL [Suspect]
     Indication: DRUG USE FOR UNKNOWN INDICATION
  9. TEMAZEPAM [Suspect]
     Indication: DRUG USE FOR UNKNOWN INDICATION

REACTIONS (1)
  - DRUG TOXICITY [None]
